FAERS Safety Report 6875409-7 (Version None)
Quarter: 2010Q3

REPORT INFORMATION
  Report Type: 
  Country: None (occurrence: None)
  Receive Date: 20100727
  Receipt Date: 20100715
  Transmission Date: 20110219
  Serious: Yes (Other)
  Sender: FDA-Public Use
  Company Number: ES-JNJFOC-20100705245

PATIENT
  Age: 60 Year
  Sex: Male

DRUGS (2)
  1. REMICADE [Suspect]
     Indication: COLITIS ULCERATIVE
     Route: 065
  2. AZATHIOPRINE [Concomitant]
     Indication: COLITIS ULCERATIVE
     Route: 065

REACTIONS (1)
  - LYMPHOMA [None]
